FAERS Safety Report 11625132 (Version 1)
Quarter: 2015Q4

REPORT INFORMATION
  Report Type: Spontaneous
  Country: US (occurrence: None)
  Receive Date: 20151013
  Receipt Date: 20151013
  Transmission Date: 20160304
  Serious: No
  Sender: FDA-Public Use
  Company Number: US-MDT-ADR-2015-01943

PATIENT
  Age: 64 Year
  Sex: Female

DRUGS (2)
  1. BACLOFEN INTRATHECAL - 2000 MCG/ML / 4000 MCG/ML [Suspect]
     Active Substance: BACLOFEN
     Indication: MUSCLE SPASTICITY
     Dosage: 1500MCG/DAY;25.7MCG/DAY
  2. HYDROMORPHINE INTRATHECAL - 4.0 MG/ML [Suspect]
     Active Substance: HYDROMORPHONE
     Dosage: 0.257 MG/DAY

REACTIONS (3)
  - Drug withdrawal syndrome [None]
  - Device malfunction [None]
  - Device battery issue [None]
